FAERS Safety Report 10464731 (Version 1)
Quarter: 2014Q3

REPORT INFORMATION
  Report Type: Spontaneous
  Country: GB (occurrence: GB)
  Receive Date: 20140919
  Receipt Date: 20140919
  Transmission Date: 20150326
  Serious: Yes (Other)
  Sender: FDA-Public Use
  Company Number: GB-WATSON-2014-20061

PATIENT
  Age: 38 Year
  Sex: Male
  Weight: 78 kg

DRUGS (20)
  1. ZOLEDRONIC ACID [Concomitant]
     Active Substance: ZOLEDRONIC ACID
     Indication: OSTEOPOROSIS
     Dosage: 1 DF, ONCE PER YEAR
     Route: 041
     Dates: start: 20130122
  2. DOMPERIDONE [Concomitant]
     Active Substance: DOMPERIDONE
     Indication: GASTROOESOPHAGEAL REFLUX DISEASE
     Dosage: 10 MG, TID - 1 TABLET IN THE MORNING AND 2 TABLETS AT NIGHT
     Route: 048
  3. ESOMEPRAZOLE [Concomitant]
     Active Substance: ESOMEPRAZOLE
     Indication: GASTROOESOPHAGEAL REFLUX DISEASE
     Dosage: 20 MG, BID
     Route: 048
  4. ADCAL D3 [Concomitant]
     Active Substance: CALCIUM CARBONATE\CHOLECALCIFEROL
     Indication: OSTEOPOROSIS
     Dosage: 2 DF, DAILY
     Route: 048
  5. GAVISCON [Concomitant]
     Active Substance: ALUMINUM HYDROXIDE\MAGNESIUM CARBONATE
     Indication: GASTROOESOPHAGEAL REFLUX DISEASE
     Dosage: 50 ML, QID - 10ML UP TO 3 TIMES DURING THE DAY, AND 20MLS AT NIGHT
     Route: 048
  6. INTAL [Concomitant]
     Active Substance: CROMOLYN SODIUM
     Indication: ASTHMA
     Dosage: 1 DF, PRN - 1 DROP PER EYE UP TO 4 TIMES DAILY AS  REQUIRED.
     Route: 050
  7. IPRATROPIUM BROMIDE. [Concomitant]
     Active Substance: IPRATROPIUM BROMIDE
     Indication: ASTHMA
     Dosage: 2 DF, BID - CAN INCREASE TO 2 DOSES FOUR TIMES A DAY
     Route: 055
  8. PARACETAMOL [Concomitant]
     Active Substance: ACETAMINOPHEN
     Indication: MIGRAINE
     Dosage: 500 MG, PRN - 2 TABLETS TO BE TAKEN AS REQUIRED FOUR TO SIX HOURLY.
     Route: 048
  9. CETIRIZINE [Concomitant]
     Active Substance: CETIRIZINE HYDROCHLORIDE
     Indication: SEASONAL ALLERGY
     Dosage: 10 MG, DAILY
     Route: 048
  10. VENTOLIN [Concomitant]
     Active Substance: ALBUTEROL SULFATE
     Indication: ASTHMA
     Dosage: 2.5 MG, PRN- UP TO 4 TIMES PER DAY THROUGH NEBULISER
     Route: 055
  11. CLOTRIMAZOLE. [Concomitant]
     Active Substance: CLOTRIMAZOLE
     Indication: ECZEMA
     Dosage: 2 DF, BID - APPLIED TO KNEE AND LEG TWICE A DAY
     Route: 061
  12. LACTULOSE. [Concomitant]
     Active Substance: LACTULOSE
     Indication: IRRITABLE BOWEL SYNDROME
     Dosage: PRN - 10-15ML AS REQUIRED
     Route: 048
  13. LOPERAMIDE [Concomitant]
     Active Substance: LOPERAMIDE
     Indication: IRRITABLE BOWEL SYNDROME
     Dosage: 2 MG, PRN - 1 OR 2 TABLETS AS REQUIRED, NO MORE THAN 8 IN 24 HOURS
     Route: 048
  14. SALBUTAMOL [Concomitant]
     Active Substance: ALBUTEROL
     Indication: ASTHMA
     Dosage: 100 ?G, PRN - 2-4 DOSES PRN
     Route: 055
  15. FLUTICASONE [Concomitant]
     Active Substance: FLUTICASONE\FLUTICASONE PROPIONATE
     Indication: ASTHMA
     Dosage: 2 DF, BID - CAN TAKE UP TO 4 DOSES TWICE A DAY
     Route: 055
  16. TOPIRAMATE (UNKNOWN) [Suspect]
     Active Substance: TOPIRAMATE
     Indication: MIGRAINE
     Dosage: 25 MG, BID (2X 25MG -50 MG, DAILY)
     Route: 048
     Dates: start: 201307, end: 201405
  17. SALMETEROL XINAFOATE [Concomitant]
     Active Substance: SALMETEROL XINAFOATE
     Indication: ASTHMA
     Dosage: 2 DF, BID - CAN TAKE UP TO 4 DOSES TWICE A DAY
     Route: 055
  18. MONTELUKAST [Concomitant]
     Active Substance: MONTELUKAST SODIUM
     Indication: ASTHMA
     Dosage: 10 MG, QHS
     Route: 048
  19. AVAMYS [Concomitant]
     Active Substance: FLUTICASONE FUROATE
     Indication: SEASONAL ALLERGY
     Dosage: 2 DF, DAILY
     Route: 045
  20. MEBEVERINE [Concomitant]
     Active Substance: MEBEVERINE
     Indication: IRRITABLE BOWEL SYNDROME
     Dosage: 135 MG, TID
     Route: 048

REACTIONS (6)
  - Wound secretion [Recovered/Resolved]
  - Blister [Recovered/Resolved]
  - Paraesthesia [Not Recovered/Not Resolved]
  - Pain [Recovered/Resolved]
  - Hypoaesthesia [Not Recovered/Not Resolved]
  - Blister rupture [Recovered/Resolved]
